FAERS Safety Report 5856452-3 (Version None)
Quarter: 2008Q3

REPORT INFORMATION
  Report Type: 
  Country: None (occurrence: None)
  Receive Date: 20080825
  Receipt Date: 20080630
  Transmission Date: 20090109
  Serious: No
  Sender: FDA-Public Use
  Company Number: A0726563A

PATIENT
  Age: 56 Year
  Sex: Female

DRUGS (8)
  1. VERAMYST [Suspect]
     Indication: SINUS DISORDER
     Dosage: 4SPR PER DAY
     Route: 045
     Dates: start: 20080401, end: 20080505
  2. KEPPRA [Concomitant]
  3. PREVACID [Concomitant]
  4. LIPITOR [Concomitant]
  5. ZETIA [Concomitant]
  6. XANAX [Concomitant]
  7. VAGISIL [Concomitant]
  8. ASTELIN [Concomitant]

REACTIONS (3)
  - DIARRHOEA [None]
  - DRUG INEFFECTIVE [None]
  - VULVOVAGINAL PRURITUS [None]
